FAERS Safety Report 4776591-8 (Version None)
Quarter: 2005Q3

REPORT INFORMATION
  Report Type: 
  Country: None (occurrence: None)
  Receive Date: 20050921
  Receipt Date: 20050909
  Transmission Date: 20060218
  Serious: Yes (Hospitalization, Other)
  Sender: FDA-Public Use
  Company Number: 2005126052

PATIENT
  Age: 73 Year
  Sex: Male
  Weight: 63.5036 kg

DRUGS (1)
  1. BEXTRA [Suspect]
     Indication: ARTHRALGIA
     Dosage: 20 MG (10 MG, 2 IN 1 D)
     Dates: start: 20050201, end: 20050101

REACTIONS (11)
  - ABDOMINAL PAIN UPPER [None]
  - BLOOD URINE PRESENT [None]
  - CHROMATURIA [None]
  - CONSTIPATION [None]
  - CORONARY ARTERY OCCLUSION [None]
  - FEELING ABNORMAL [None]
  - HAEMORRHAGE [None]
  - RASH MACULAR [None]
  - SKIN DISCOLOURATION [None]
  - URINARY TRACT INFECTION [None]
  - WEIGHT DECREASED [None]
